FAERS Safety Report 5032519-7 (Version None)
Quarter: 2006Q2

REPORT INFORMATION
  Report Type: 
  Country: None (occurrence: None)
  Receive Date: 20060622
  Receipt Date: 20060519
  Transmission Date: 20061013
  Serious: Yes (Life-Threatening, Hospitalization)
  Sender: FDA-Public Use
  Company Number: JP-BRISTOL-MYERS SQUIBB COMPANY-13392949

PATIENT
  Age: 73 Year
  Sex: Female

DRUGS (16)
  1. GATIFLOXACIN [Suspect]
     Indication: URINARY TRACT INFECTION
     Dosage: THERAPY STOPPED ON 18-MAR-2006 AND RESTARTED ON 18-APR-2006 AT 400 MG DAILY.
     Route: 048
     Dates: start: 20060310, end: 20060422
  2. MEROPEN [Suspect]
     Indication: URINARY TRACT INFECTION
     Route: 041
  3. POLARAMINE [Suspect]
     Indication: SINUSITIS
     Route: 048
     Dates: start: 20060418, end: 20060420
  4. RIMATIL [Concomitant]
     Indication: RHEUMATOID ARTHRITIS
     Route: 048
     Dates: start: 19900101
  5. PREDONINE [Concomitant]
     Indication: RHEUMATOID ARTHRITIS
     Route: 048
  6. NICARDIPINE HCL [Concomitant]
     Route: 048
  7. CLARITHROMYCIN [Concomitant]
     Route: 048
     Dates: end: 20060423
  8. ALFAROL [Concomitant]
     Route: 048
  9. CALCIUM LACTATE [Concomitant]
     Route: 048
  10. LENDORMIN [Concomitant]
     Route: 048
  11. ALOSENN [Concomitant]
     Route: 048
     Dates: end: 20060423
  12. GASTER [Concomitant]
     Route: 048
     Dates: start: 20051007
  13. TAKEPRON [Concomitant]
     Route: 048
     Dates: start: 20051007, end: 20060423
  14. FLONASE [Concomitant]
     Route: 045
     Dates: end: 20060423
  15. POLARAMINE [Concomitant]
     Dates: start: 20060418, end: 20060420
  16. VOLTAREN [Concomitant]
     Route: 054
     Dates: end: 20060423

REACTIONS (5)
  - COUGH [None]
  - HAEMORRHAGE [None]
  - MALAISE [None]
  - PLATELET COUNT DECREASED [None]
  - PYREXIA [None]
